FAERS Safety Report 20115233 (Version 2)
Quarter: 2021Q4

REPORT INFORMATION
  Report Type: Report from Study
  Country: NL (occurrence: NL)
  Receive Date: 20211125
  Receipt Date: 20211129
  Transmission Date: 20220303
  Serious: Yes (Death, Other)
  Sender: FDA-Public Use
  Company Number: NL-ABBVIE-21K-114-4160642-00

PATIENT
  Age: 77 Year
  Sex: Female

DRUGS (3)
  1. CARBIDOPA\LEVODOPA [Suspect]
     Active Substance: CARBIDOPA\LEVODOPA
     Indication: Parkinson^s disease
     Dosage: 20 MG/ML 5 MG/ML
     Route: 050
     Dates: start: 20210531, end: 2021
  2. CARBIDOPA\LEVODOPA [Suspect]
     Active Substance: CARBIDOPA\LEVODOPA
     Dosage: MD 13.5 ML CD 5.1 ML/H ED 4.5 ML CND 3.2 ML/H END 1.5 ML
     Route: 050
     Dates: start: 2021, end: 2021
  3. CARBIDOPA\LEVODOPA [Suspect]
     Active Substance: CARBIDOPA\LEVODOPA
     Dosage: MD 13.5 ML CD 5.1 ML/H ED 4.5 ML
     Route: 050
     Dates: start: 2021

REACTIONS (25)
  - Parkinson^s disease [Fatal]
  - Somnolence [Fatal]
  - Near death experience [Not Recovered/Not Resolved]
  - General physical health deterioration [Not Recovered/Not Resolved]
  - Seizure [Not Recovered/Not Resolved]
  - Syncope [Unknown]
  - Urinary tract infection [Not Recovered/Not Resolved]
  - Restless legs syndrome [Not Recovered/Not Resolved]
  - Cystitis [Not Recovered/Not Resolved]
  - Speech disorder [Not Recovered/Not Resolved]
  - Decreased activity [Not Recovered/Not Resolved]
  - Pain in extremity [Not Recovered/Not Resolved]
  - Asthenia [Not Recovered/Not Resolved]
  - Muscle spasms [Not Recovered/Not Resolved]
  - Paraesthesia [Not Recovered/Not Resolved]
  - Weight decreased [Unknown]
  - Decreased appetite [Not Recovered/Not Resolved]
  - Fear [Not Recovered/Not Resolved]
  - Fatigue [Not Recovered/Not Resolved]
  - Delirium [Not Recovered/Not Resolved]
  - Hallucination [Not Recovered/Not Resolved]
  - Hypersomnia [Not Recovered/Not Resolved]
  - On and off phenomenon [Unknown]
  - Therapeutic product effect incomplete [Unknown]
  - Anxiety [Unknown]

NARRATIVE: CASE EVENT DATE: 20210101
